FAERS Safety Report 11719790 (Version 1)
Quarter: 2015Q4

REPORT INFORMATION
  Report Type: Spontaneous
  Country: US (occurrence: US)
  Receive Date: 20151110
  Receipt Date: 20151110
  Transmission Date: 20160304
  Serious: No
  Sender: FDA-Public Use
  Company Number: US-PERRIGO-15US007409

PATIENT
  Age: 69 Year
  Sex: Female
  Weight: 52.15 kg

DRUGS (4)
  1. NICOTINE POLACRILEX [Suspect]
     Active Substance: NICOTINE
     Indication: SMOKING CESSATION THERAPY
     Dosage: UNKNOWN, UNKNOWN
     Route: 002
     Dates: start: 201507, end: 201507
  2. NICOTINE POLACRILEX [Suspect]
     Active Substance: NICOTINE
     Dosage: 4 MG, 6 TIMES IN 24 HOURS
     Route: 002
     Dates: start: 201507, end: 201507
  3. VITAMIN D [Concomitant]
     Active Substance: CHOLECALCIFEROL
     Indication: SUPPLEMENTATION THERAPY
     Dosage: UNK
     Route: 065
  4. VITAMIN B COMPLEX [Suspect]
     Active Substance: CYANOCOBALAMIN\DEXPANTHENOL\NIACINAMIDE\PYRIDOXINE HYDROCHLORIDE\RIBOFLAVIN 5^-PHOSPHATE SODIUM\THIAMINE HYDROCHLORIDE\VITAMIN B COMPLEX
     Indication: SUPPLEMENTATION THERAPY
     Dosage: UNKNOWN, QD
     Route: 048

REACTIONS (5)
  - Tooth discolouration [Not Recovered/Not Resolved]
  - Incorrect dose administered [Recovered/Resolved]
  - Eye colour change [Recovered/Resolved]
  - Chromaturia [Recovered/Resolved]
  - Tongue discolouration [Not Recovered/Not Resolved]

NARRATIVE: CASE EVENT DATE: 201507
